FAERS Safety Report 9390388 (Version 1)
Quarter: 2013Q3

REPORT INFORMATION
  Report Type: Spontaneous
  Country: US (occurrence: None)
  Receive Date: 20130701
  Receipt Date: 20130701
  Transmission Date: 20140515
  Serious: Yes (Hospitalization)
  Sender: FDA-Public Use
  Company Number: 2013AP006337

PATIENT
  Age: 57 Year
  Sex: Female

DRUGS (1)
  1. ALENDRONATE SODIUM [Suspect]
     Indication: OSTEOPOROSIS

REACTIONS (8)
  - Foreign body aspiration [None]
  - Tracheobronchitis [None]
  - Dyspnoea [None]
  - Dysphonia [None]
  - Productive cough [None]
  - Respiratory distress [None]
  - Obstructive airways disorder [None]
  - Upper airway necrosis [None]
